FAERS Safety Report 18409890 (Version 1)
Quarter: 2020Q4

REPORT INFORMATION
  Report Type: Spontaneous
  Country: US (occurrence: US)
  Receive Date: 20201021
  Receipt Date: 20201021
  Transmission Date: 20210114
  Serious: Yes (Other)
  Sender: FDA-Public Use
  Company Number: US-BAYER-2020-220428

PATIENT
  Sex: Female

DRUGS (3)
  1. DALFAMPRIDINE. [Concomitant]
     Active Substance: DALFAMPRIDINE
  2. TECFIDERA [Concomitant]
     Active Substance: DIMETHYL FUMARATE
  3. BAYER LOW DOSE [Suspect]
     Active Substance: ASPIRIN

REACTIONS (7)
  - Hypoaesthesia [None]
  - Absence of immediate treatment response [None]
  - Hot flush [None]
  - Bladder disorder [None]
  - Craniocerebral injury [None]
  - Flushing [None]
  - Progressive multiple sclerosis [None]
